FAERS Safety Report 16551379 (Version 3)
Quarter: 2019Q3

REPORT INFORMATION
  Report Type: Spontaneous
  Country: US (occurrence: US)
  Receive Date: 20190710
  Receipt Date: 20190823
  Transmission Date: 20191004
  Serious: Yes (Other)
  Sender: FDA-Public Use
  Company Number: US-BAYER-2019-125660

PATIENT
  Age: 23 Year
  Sex: Female
  Weight: 130 kg

DRUGS (4)
  1. MIRENA [Suspect]
     Active Substance: LEVONORGESTREL
     Indication: CONTRACEPTION
  2. OMEPRAZOLE. [Concomitant]
     Active Substance: OMEPRAZOLE
  3. MIRENA [Suspect]
     Active Substance: LEVONORGESTREL
     Indication: CONTRACEPTION
     Dosage: 20 MCG/24HR, CONT
     Route: 015
     Dates: start: 20181010, end: 20190624
  4. LORAZEPAM. [Concomitant]
     Active Substance: LORAZEPAM
     Route: 048

REACTIONS (5)
  - Device breakage [Recovered/Resolved]
  - Coital bleeding [None]
  - Back pain [None]
  - Device expulsion [Recovered/Resolved]
  - Dysfunctional uterine bleeding [None]

NARRATIVE: CASE EVENT DATE: 201906
